FAERS Safety Report 23575932 (Version 10)
Quarter: 2024Q2

REPORT INFORMATION
  Report Type: Spontaneous
  Country: US (occurrence: US)
  Receive Date: 20240228
  Receipt Date: 20240628
  Transmission Date: 20240716
  Serious: Yes (Hospitalization)
  Sender: FDA-Public Use
  Company Number: US-PFIZER INC-PV202400025953

PATIENT
  Age: 70 Year
  Sex: Male

DRUGS (2)
  1. BOSULIF [Suspect]
     Active Substance: BOSUTINIB MONOHYDRATE
     Indication: Chronic myeloid leukaemia
     Dosage: 300 MG (3 TABLETS OF 100 MG), DAILY
     Route: 048
  2. BOSUTINIB [Suspect]
     Active Substance: BOSUTINIB
     Indication: Chronic myeloid leukaemia
     Dosage: 300 MG (3 TABLETS OF 100 MG), 1X/DAY
     Route: 048

REACTIONS (2)
  - Cardiac disorder [Unknown]
  - Product prescribing issue [Unknown]
